APPROVED DRUG PRODUCT: NASCOBAL
Active Ingredient: CYANOCOBALAMIN
Strength: 0.5MG/SPRAY **Federal Register determination that product was not discontinued or withdrawn for safety or effectiveness reasons**
Dosage Form/Route: SPRAY, METERED;NASAL
Application: N021642 | Product #001
Applicant: ENDO OPERATIONS LTD
Approved: Jan 31, 2005 | RLD: Yes | RS: No | Type: DISCN